FAERS Safety Report 8567023 (Version 5)
Quarter: 2013Q2

REPORT INFORMATION
  Report Type: Spontaneous
  Country: US (occurrence: US)
  Receive Date: 20120517
  Receipt Date: 20130520
  Transmission Date: 20140414
  Serious: Yes (Hospitalization)
  Sender: FDA-Public Use
  Company Number: US-ASTRAZENECA-2012SE28690

PATIENT
  Age: 62 Year
  Sex: Female
  Weight: 72.6 kg

DRUGS (133)
  1. SEROQUEL XR [Suspect]
     Indication: DELUSIONAL DISORDER, UNSPECIFIED TYPE
     Route: 048
     Dates: start: 200702
  2. SEROQUEL XR [Suspect]
     Indication: SCHIZOPHRENIA
     Route: 048
     Dates: start: 200702
  3. SEROQUEL XR [Suspect]
     Indication: PSYCHOTIC DISORDER
     Route: 048
     Dates: start: 200702
  4. SEROQUEL XR [Suspect]
     Indication: DEPRESSION
     Route: 048
     Dates: start: 200702
  5. SEROQUEL XR [Suspect]
     Indication: INSOMNIA
     Route: 048
     Dates: start: 200702
  6. SEROQUEL XR [Suspect]
     Indication: DELUSIONAL DISORDER, UNSPECIFIED TYPE
     Dosage: HALF TABLET AT NIGHT AS PER NEEDED.
     Route: 048
     Dates: start: 20070228
  7. SEROQUEL XR [Suspect]
     Indication: SCHIZOPHRENIA
     Dosage: HALF TABLET AT NIGHT AS PER NEEDED.
     Route: 048
     Dates: start: 20070228
  8. SEROQUEL XR [Suspect]
     Indication: PSYCHOTIC DISORDER
     Dosage: HALF TABLET AT NIGHT AS PER NEEDED.
     Route: 048
     Dates: start: 20070228
  9. SEROQUEL XR [Suspect]
     Indication: DEPRESSION
     Dosage: HALF TABLET AT NIGHT AS PER NEEDED.
     Route: 048
     Dates: start: 20070228
  10. SEROQUEL XR [Suspect]
     Indication: INSOMNIA
     Dosage: HALF TABLET AT NIGHT AS PER NEEDED.
     Route: 048
     Dates: start: 20070228
  11. SEROQUEL XR [Suspect]
     Indication: DELUSIONAL DISORDER, UNSPECIFIED TYPE
     Route: 048
     Dates: start: 200712
  12. SEROQUEL XR [Suspect]
     Indication: SCHIZOPHRENIA
     Route: 048
     Dates: start: 200712
  13. SEROQUEL XR [Suspect]
     Indication: PSYCHOTIC DISORDER
     Route: 048
     Dates: start: 200712
  14. SEROQUEL XR [Suspect]
     Indication: DEPRESSION
     Route: 048
     Dates: start: 200712
  15. SEROQUEL XR [Suspect]
     Indication: INSOMNIA
     Route: 048
     Dates: start: 200712
  16. SEROQUEL XR [Suspect]
     Indication: DELUSIONAL DISORDER, UNSPECIFIED TYPE
     Route: 048
     Dates: start: 200712
  17. SEROQUEL XR [Suspect]
     Indication: SCHIZOPHRENIA
     Route: 048
     Dates: start: 200712
  18. SEROQUEL XR [Suspect]
     Indication: PSYCHOTIC DISORDER
     Route: 048
     Dates: start: 200712
  19. SEROQUEL XR [Suspect]
     Indication: DEPRESSION
     Route: 048
     Dates: start: 200712
  20. SEROQUEL XR [Suspect]
     Indication: INSOMNIA
     Route: 048
     Dates: start: 200712
  21. SEROQUEL XR [Suspect]
     Indication: DELUSIONAL DISORDER, UNSPECIFIED TYPE
     Route: 048
     Dates: start: 20110419
  22. SEROQUEL XR [Suspect]
     Indication: SCHIZOPHRENIA
     Route: 048
     Dates: start: 20110419
  23. SEROQUEL XR [Suspect]
     Indication: PSYCHOTIC DISORDER
     Route: 048
     Dates: start: 20110419
  24. SEROQUEL XR [Suspect]
     Indication: DEPRESSION
     Route: 048
     Dates: start: 20110419
  25. SEROQUEL XR [Suspect]
     Indication: INSOMNIA
     Route: 048
     Dates: start: 20110419
  26. SEROQUEL XR [Suspect]
     Indication: DELUSIONAL DISORDER, UNSPECIFIED TYPE
     Route: 048
  27. SEROQUEL XR [Suspect]
     Indication: SCHIZOPHRENIA
     Route: 048
  28. SEROQUEL XR [Suspect]
     Indication: PSYCHOTIC DISORDER
     Route: 048
  29. SEROQUEL XR [Suspect]
     Indication: DEPRESSION
     Route: 048
  30. SEROQUEL XR [Suspect]
     Indication: INSOMNIA
     Route: 048
  31. SEROQUEL XR [Suspect]
     Indication: DELUSIONAL DISORDER, UNSPECIFIED TYPE
     Route: 048
  32. SEROQUEL XR [Suspect]
     Indication: SCHIZOPHRENIA
     Route: 048
  33. SEROQUEL XR [Suspect]
     Indication: PSYCHOTIC DISORDER
     Route: 048
  34. SEROQUEL XR [Suspect]
     Indication: DEPRESSION
     Route: 048
  35. SEROQUEL XR [Suspect]
     Indication: INSOMNIA
     Route: 048
  36. SEROQUEL XR [Suspect]
     Indication: DELUSIONAL DISORDER, UNSPECIFIED TYPE
     Route: 048
  37. SEROQUEL XR [Suspect]
     Indication: SCHIZOPHRENIA
     Route: 048
  38. SEROQUEL XR [Suspect]
     Indication: PSYCHOTIC DISORDER
     Route: 048
  39. SEROQUEL XR [Suspect]
     Indication: DEPRESSION
     Route: 048
  40. SEROQUEL XR [Suspect]
     Indication: INSOMNIA
     Route: 048
  41. SEROQUEL XR [Suspect]
     Indication: DELUSIONAL DISORDER, UNSPECIFIED TYPE
     Route: 048
     Dates: start: 20120611, end: 20120711
  42. SEROQUEL XR [Suspect]
     Indication: SCHIZOPHRENIA
     Route: 048
     Dates: start: 20120611, end: 20120711
  43. SEROQUEL XR [Suspect]
     Indication: PSYCHOTIC DISORDER
     Route: 048
     Dates: start: 20120611, end: 20120711
  44. SEROQUEL XR [Suspect]
     Indication: DEPRESSION
     Route: 048
     Dates: start: 20120611, end: 20120711
  45. SEROQUEL XR [Suspect]
     Indication: INSOMNIA
     Route: 048
     Dates: start: 20120611, end: 20120711
  46. SEROQUEL XR [Suspect]
     Indication: DELUSIONAL DISORDER, UNSPECIFIED TYPE
     Route: 048
     Dates: start: 20120611, end: 20120711
  47. SEROQUEL XR [Suspect]
     Indication: SCHIZOPHRENIA
     Route: 048
     Dates: start: 20120611, end: 20120711
  48. SEROQUEL XR [Suspect]
     Indication: PSYCHOTIC DISORDER
     Route: 048
     Dates: start: 20120611, end: 20120711
  49. SEROQUEL XR [Suspect]
     Indication: DEPRESSION
     Route: 048
     Dates: start: 20120611, end: 20120711
  50. SEROQUEL XR [Suspect]
     Indication: INSOMNIA
     Route: 048
     Dates: start: 20120611, end: 20120711
  51. SEROQUEL XR [Suspect]
     Indication: DELUSIONAL DISORDER, UNSPECIFIED TYPE
     Route: 048
  52. SEROQUEL XR [Suspect]
     Indication: SCHIZOPHRENIA
     Route: 048
  53. SEROQUEL XR [Suspect]
     Indication: PSYCHOTIC DISORDER
     Route: 048
  54. SEROQUEL XR [Suspect]
     Indication: DEPRESSION
     Route: 048
  55. SEROQUEL XR [Suspect]
     Indication: INSOMNIA
     Route: 048
  56. SEROQUEL XR [Suspect]
     Indication: DELUSIONAL DISORDER, UNSPECIFIED TYPE
     Dosage: 1 WITH 100 MG PO AT NIGHT
     Route: 048
  57. SEROQUEL XR [Suspect]
     Indication: SCHIZOPHRENIA
     Dosage: 1 WITH 100 MG PO AT NIGHT
     Route: 048
  58. SEROQUEL XR [Suspect]
     Indication: PSYCHOTIC DISORDER
     Dosage: 1 WITH 100 MG PO AT NIGHT
     Route: 048
  59. SEROQUEL XR [Suspect]
     Indication: DEPRESSION
     Dosage: 1 WITH 100 MG PO AT NIGHT
     Route: 048
  60. SEROQUEL XR [Suspect]
     Indication: INSOMNIA
     Dosage: 1 WITH 100 MG PO AT NIGHT
     Route: 048
  61. SEROQUEL XR [Suspect]
     Indication: DELUSIONAL DISORDER, UNSPECIFIED TYPE
     Dosage: 1 WITH 400 MG PO AT NIGHT
     Route: 048
  62. SEROQUEL XR [Suspect]
     Indication: SCHIZOPHRENIA
     Dosage: 1 WITH 400 MG PO AT NIGHT
     Route: 048
  63. SEROQUEL XR [Suspect]
     Indication: PSYCHOTIC DISORDER
     Dosage: 1 WITH 400 MG PO AT NIGHT
     Route: 048
  64. SEROQUEL XR [Suspect]
     Indication: DEPRESSION
     Dosage: 1 WITH 400 MG PO AT NIGHT
     Route: 048
  65. SEROQUEL XR [Suspect]
     Indication: INSOMNIA
     Dosage: 1 WITH 400 MG PO AT NIGHT
     Route: 048
  66. SEROQUEL XR [Suspect]
     Indication: DELUSIONAL DISORDER, UNSPECIFIED TYPE
     Dosage: AS DIRECTED
     Route: 048
  67. SEROQUEL XR [Suspect]
     Indication: SCHIZOPHRENIA
     Dosage: AS DIRECTED
     Route: 048
  68. SEROQUEL XR [Suspect]
     Indication: PSYCHOTIC DISORDER
     Dosage: AS DIRECTED
     Route: 048
  69. SEROQUEL XR [Suspect]
     Indication: DEPRESSION
     Dosage: AS DIRECTED
     Route: 048
  70. SEROQUEL XR [Suspect]
     Indication: INSOMNIA
     Dosage: AS DIRECTED
     Route: 048
  71. SEROQUEL XR [Suspect]
     Indication: DELUSIONAL DISORDER, UNSPECIFIED TYPE
     Route: 048
  72. SEROQUEL XR [Suspect]
     Indication: SCHIZOPHRENIA
     Route: 048
  73. SEROQUEL XR [Suspect]
     Indication: PSYCHOTIC DISORDER
     Route: 048
  74. SEROQUEL XR [Suspect]
     Indication: DEPRESSION
     Route: 048
  75. SEROQUEL XR [Suspect]
     Indication: INSOMNIA
     Route: 048
  76. SEROQUEL XR [Suspect]
     Indication: DELUSIONAL DISORDER, UNSPECIFIED TYPE
     Route: 048
  77. SEROQUEL XR [Suspect]
     Indication: SCHIZOPHRENIA
     Route: 048
  78. SEROQUEL XR [Suspect]
     Indication: PSYCHOTIC DISORDER
     Route: 048
  79. SEROQUEL XR [Suspect]
     Indication: DEPRESSION
     Route: 048
  80. SEROQUEL XR [Suspect]
     Indication: INSOMNIA
     Route: 048
  81. SEROQUEL XR [Suspect]
     Indication: DELUSIONAL DISORDER, UNSPECIFIED TYPE
     Route: 048
  82. SEROQUEL XR [Suspect]
     Indication: SCHIZOPHRENIA
     Route: 048
  83. SEROQUEL XR [Suspect]
     Indication: PSYCHOTIC DISORDER
     Route: 048
  84. SEROQUEL XR [Suspect]
     Indication: DEPRESSION
     Route: 048
  85. SEROQUEL XR [Suspect]
     Indication: INSOMNIA
     Route: 048
  86. DIVALPROEX [Suspect]
     Route: 048
  87. DIVALPROEX [Suspect]
     Dosage: 2 EVERY MORNING AND 2 AT NIGHT
     Route: 048
     Dates: start: 20120330
  88. MULTIVITAMINS [Suspect]
     Route: 048
  89. VITAMIN D [Concomitant]
     Dosage: 1000 UNIT
  90. ZYPREXA [Concomitant]
     Route: 048
     Dates: start: 20041117
  91. ZYPREXA [Concomitant]
     Route: 048
     Dates: start: 20050128
  92. ZIPRAZIDONE [Concomitant]
     Dosage: TAKE 1 BID AND 1 DAILY
     Route: 048
     Dates: start: 20050506
  93. LOVASTATIN [Concomitant]
     Route: 048
     Dates: start: 20050527
  94. CLONAZEPAM [Concomitant]
     Indication: ANXIETY
     Dosage: 1/2 BID PRN
     Route: 048
     Dates: start: 20050909
  95. CLONAZEPAM [Concomitant]
     Indication: AGITATION
     Dosage: 1/2 BID PRN
     Route: 048
     Dates: start: 20050909
  96. LUNESTA [Concomitant]
     Indication: INSOMNIA
     Route: 048
     Dates: start: 20051122
  97. PAROXETINE [Concomitant]
     Route: 048
     Dates: start: 20060106
  98. TRAZODONE [Concomitant]
     Dosage: 1/2-1 AT NIGHT
     Route: 048
     Dates: start: 20060111
  99. AMBIEN [Concomitant]
     Indication: INSOMNIA
     Route: 048
     Dates: start: 20120330
  100. KLONOPIN [Concomitant]
     Route: 048
     Dates: start: 19980504
  101. RISPERDAL [Concomitant]
     Dates: start: 20111221
  102. ATIVAN [Concomitant]
     Route: 048
     Dates: start: 20101118, end: 20110722
  103. ZOLOFT [Concomitant]
     Route: 048
     Dates: start: 20101118, end: 20101118
  104. DIPHTHERIA TETANUS VACCINE [Concomitant]
     Route: 030
     Dates: start: 20060515
  105. FLU VACCINE [Concomitant]
     Dosage: SPLIT
     Dates: start: 20061014
  106. FLU VACCINE [Concomitant]
     Dosage: SPLIT
     Dates: start: 20080922
  107. FLU VACCINE [Concomitant]
     Dosage: SPLIT
     Dates: start: 20110913
  108. FLU VACCINE [Concomitant]
     Dosage: WHOLE
     Dates: start: 20061014
  109. FLU VACCINE [Concomitant]
     Dosage: WHOLE
     Dates: start: 20090904
  110. HEPATITIS A AND HEPATITIS B [Concomitant]
     Route: 030
     Dates: start: 20110727
  111. HEPATITIS A AND HEPATITIS B [Concomitant]
     Route: 030
     Dates: start: 20110825
  112. CRANBERRY [Concomitant]
     Dosage: 2000 MG + 2 THREE TIMES A DAY
  113. CYSTEX PLUS [Concomitant]
     Dosage: 162.5 MH
  114. SODIUM SALICYLATE [Concomitant]
  115. METHENAMINE [Concomitant]
  116. TDAP [Concomitant]
     Dates: start: 20111104
  117. ZOSTER VACCINE [Concomitant]
     Route: 058
     Dates: start: 20111104
  118. CITALOPRAM [Concomitant]
     Dosage: 1/2 DAILY FOR 4 DAYS AND THEN ONCE DAILY
     Route: 048
     Dates: start: 20061101
  119. CHOLECALCIFEROL/VITAMIN D3 [Concomitant]
     Dosage: 2000 UNIT 1 TAB EVERY DAY
     Route: 048
  120. CALCIUM CARBONATE [Concomitant]
     Route: 048
  121. KENALOG [Concomitant]
  122. OXYBUTYNIN [Concomitant]
  123. ASPIRIN [Concomitant]
     Route: 048
  124. ASPIRIN [Concomitant]
     Route: 048
  125. DIGOXIN [Concomitant]
     Dates: start: 1989
  126. CALCIUM [Concomitant]
  127. OTC LIPID CONTROL REMEDY [Concomitant]
  128. PRILOSEC OTC [Concomitant]
     Indication: THROAT TIGHTNESS
  129. METFORMIN HCL [Concomitant]
  130. OMEPRAZOLE [Concomitant]
  131. COQ [Concomitant]
  132. ZOLPIDEM TARTRATE [Concomitant]
     Route: 048
  133. TAMSULOSIN HCL [Concomitant]
     Route: 048

REACTIONS (55)
  - Paranoia [Unknown]
  - Gastrooesophageal reflux disease [Unknown]
  - Anger [Unknown]
  - Atrophic vulvovaginitis [Unknown]
  - Dysuria [Unknown]
  - Carpal tunnel syndrome [Unknown]
  - Clumsiness [Unknown]
  - Nasopharyngitis [Unknown]
  - Dermatitis [Unknown]
  - Diabetes mellitus [Unknown]
  - Ear pruritus [Unknown]
  - Ear pain [Unknown]
  - Eczema [Unknown]
  - Feeling hot [Recovered/Resolved]
  - Frequent bowel movements [Recovered/Resolved]
  - Herpes virus infection [Recovered/Resolved]
  - Insomnia [Unknown]
  - Intraductal papilloma of breast [Unknown]
  - Arthralgia [Unknown]
  - Vitamin D decreased [Unknown]
  - Joint swelling [Unknown]
  - Memory impairment [Unknown]
  - Metabolic syndrome [Unknown]
  - Gait disturbance [Recovered/Resolved]
  - Postmenopausal haemorrhage [Unknown]
  - Rash [Unknown]
  - Rash [Unknown]
  - Anxiety disorder [Unknown]
  - Pain in extremity [Unknown]
  - Vulva cyst [Recovered/Resolved]
  - Pollakiuria [Recovered/Resolved]
  - Coordination abnormal [Unknown]
  - Urinary incontinence [Unknown]
  - Urinary tract infection [Unknown]
  - Vulvovaginal dryness [Recovered/Resolved]
  - Skin papilloma [Unknown]
  - Anxiety [Unknown]
  - Weight fluctuation [Unknown]
  - Decreased appetite [Unknown]
  - Polyuria [Unknown]
  - Headache [Unknown]
  - Weight decreased [Unknown]
  - Constipation [Unknown]
  - Dry mouth [Recovered/Resolved]
  - Fatigue [Unknown]
  - Galactorrhoea [Recovered/Resolved]
  - Hyperlipidaemia [Unknown]
  - Irritability [Unknown]
  - Psychomotor hyperactivity [Unknown]
  - Dysarthria [Recovered/Resolved]
  - Tremor [Recovered/Resolved]
  - Dysphagia [Recovered/Resolved]
  - Weight increased [Unknown]
  - Off label use [Unknown]
  - Circumstance or information capable of leading to medication error [Unknown]
